FAERS Safety Report 7531510-6 (Version None)
Quarter: 2011Q2

REPORT INFORMATION
  Report Type: 
  Country: None (occurrence: None)
  Receive Date: 20110608
  Receipt Date: 20110525
  Transmission Date: 20111010
  Serious: Yes (Hospitalization, Congenital Anomaly, Other)
  Sender: FDA-Public Use
  Company Number: PHHY2011DE45641

PATIENT
  Sex: Male
  Weight: 1.995 kg

DRUGS (11)
  1. PREDNISOLONE [Suspect]
     Dosage: 15 MG, QD, GW: 20-22
     Route: 064
  2. PREDNISOLONE [Suspect]
     Dosage: 15 MG, QD
     Route: 064
  3. FOLIC ACID [Concomitant]
     Indication: PROPHYLAXIS OF NEURAL TUBE DEFECT
     Dosage: UNK
     Route: 064
     Dates: start: 20081115, end: 20090815
  4. VOLTAREN [Suspect]
     Indication: RHEUMATOID ARTHRITIS
     Dosage: 280 MG, QD
     Route: 064
  5. HUMIRA [Concomitant]
     Indication: RHEUMATOID ARTHRITIS
     Dosage: 40 MG, UNK
     Route: 064
  6. PREDNISOLONE [Suspect]
     Indication: RHEUMATOID ARTHRITIS
     Dosage: 30 MG, QD, GW: 0-14
     Route: 064
  7. IBUPROFEN [Suspect]
     Indication: RHEUMATOID ARTHRITIS
     Dosage: 600 MG, QD
     Route: 064
  8. PREDNISOLONE [Suspect]
     Dosage: 20 MG, QD, GW: 27-35
     Route: 064
  9. ACETAMINOPHEN [Concomitant]
     Indication: RHEUMATOID ARTHRITIS
     Dosage: 3000 MG, QD
     Route: 064
  10. PREDNISOLONE [Suspect]
     Dosage: 5 MG, QD, GW: 14-16
     Route: 064
  11. PREDNISOLONE [Suspect]
     Dosage: 10 MG, QD, GW: 16-20
     Route: 064

REACTIONS (7)
  - DRUG EXPOSURE DURING PREGNANCY [None]
  - FOETAL GROWTH RESTRICTION [None]
  - HYPERBILIRUBINAEMIA NEONATAL [None]
  - PREMATURE BABY [None]
  - DUCTUS ARTERIOSUS STENOSIS FOETAL [None]
  - SMALL FOR DATES BABY [None]
  - CRYPTORCHISM [None]
